FAERS Safety Report 13689443 (Version 1)
Quarter: 2017Q2

REPORT INFORMATION
  Report Type: Spontaneous
  Country: US (occurrence: US)
  Receive Date: 20170626
  Receipt Date: 20170626
  Transmission Date: 20170830
  Serious: No
  Sender: FDA-Public Use
  Company Number: US-GLAXOSMITHKLINE-US2017096157

PATIENT
  Sex: Female

DRUGS (2)
  1. FLONASE SENSIMIST ALLERGY RELIEF [Suspect]
     Active Substance: FLUTICASONE FUROATE
     Indication: HYPERSENSITIVITY
     Dosage: UNK
  2. FLONASE SENSIMIST ALLERGY RELIEF [Suspect]
     Active Substance: FLUTICASONE FUROATE
     Indication: COUGH

REACTIONS (7)
  - Musculoskeletal discomfort [Unknown]
  - Pharyngeal oedema [Unknown]
  - Ear discomfort [Unknown]
  - Pharyngeal erythema [Unknown]
  - Oropharyngeal pain [Unknown]
  - Dysphagia [Unknown]
  - Product use in unapproved indication [Unknown]
